FAERS Safety Report 8558215-7 (Version None)
Quarter: 2012Q3

REPORT INFORMATION
  Report Type: 
  Country: None (occurrence: None)
  Receive Date: 20120801
  Receipt Date: 20120720
  Transmission Date: 20120928
  Serious: Yes (Other)
  Sender: FDA-Public Use
  Company Number: GB-BAUSCH-BL-2012-000158

PATIENT
  Sex: Male
  Weight: 73 kg

DRUGS (1)
  1. CROMOLUX 2% EYE DROPS [Suspect]
     Indication: SEASONAL ALLERGY
     Route: 047
     Dates: start: 20120612, end: 20120708

REACTIONS (2)
  - VISUAL IMPAIRMENT [None]
  - INTRAOCULAR PRESSURE INCREASED [None]
